FAERS Safety Report 8326234-1 (Version None)
Quarter: 2012Q2

REPORT INFORMATION
  Report Type: 
  Country: None (occurrence: None)
  Receive Date: 20120427
  Receipt Date: 20120418
  Transmission Date: 20120825
  Serious: Yes (Other)
  Sender: FDA-Public Use
  Company Number: DEP_00623_2012

PATIENT
  Sex: Male

DRUGS (1)
  1. GRALISE [Suspect]
     Indication: PRODUCT USED FOR UNKNOWN INDICATION
     Dosage: (DF)
     Dates: start: 20120101, end: 20120401

REACTIONS (1)
  - HOMICIDAL IDEATION [None]
